FAERS Safety Report 5133126-8 (Version None)
Quarter: 2006Q4

REPORT INFORMATION
  Report Type: 
  Country: None (occurrence: None)
  Receive Date: 20061017
  Receipt Date: 20061005
  Transmission Date: 20070319
  Serious: Yes (Other)
  Sender: FDA-Public Use
  Company Number: 2006123261

PATIENT
  Sex: Female

DRUGS (2)
  1. NORVASC [Suspect]
     Dosage: 10 MG (5 MG, FREQUENCY: BD)
  2. ADALAT [Suspect]
     Dosage: 40 MG

REACTIONS (6)
  - AORTIC VALVE INCOMPETENCE [None]
  - COUGH [None]
  - FACE OEDEMA [None]
  - FLUID RETENTION [None]
  - GENERALISED OEDEMA [None]
  - WEIGHT INCREASED [None]
